FAERS Safety Report 16298458 (Version 1)
Quarter: 2019Q2

REPORT INFORMATION
  Report Type: Report from Study
  Country: ES (occurrence: ES)
  Receive Date: 20190510
  Receipt Date: 20190510
  Transmission Date: 20190711
  Serious: Yes (Life-Threatening, Hospitalization)
  Sender: FDA-Public Use
  Company Number: ES-TEVA-2019-ES-1047432

PATIENT
  Age: 85 Year
  Sex: Female

DRUGS (6)
  1. ACETILSALICILICO ACIDO (176A) [Interacting]
     Active Substance: ASPIRIN
     Route: 048
     Dates: start: 201704, end: 20190111
  2. MANIDIPINO HIDROCLORURO (2841CH) [Concomitant]
     Indication: HYPERTENSION
     Route: 048
     Dates: start: 201804
  3. SERTRALINA (2537A) [Suspect]
     Active Substance: SERTRALINE HYDROCHLORIDE
     Route: 048
     Dates: start: 201711
  4. FUROSEMIDA (1615A) [Concomitant]
     Active Substance: FUROSEMIDE
     Indication: HYPERTENSION
     Route: 048
  5. HIDROCLOROTIAZIDA (1343A) [Concomitant]
     Active Substance: HYDROCHLOROTHIAZIDE
     Indication: HYPERTENSION
     Route: 048
  6. ENALAPRIL MALEATO (2142MA) [Concomitant]
     Active Substance: ENALAPRIL MALEATE
     Indication: HYPERTENSION
     Route: 048

REACTIONS (2)
  - Drug interaction [Unknown]
  - Haemorrhage intracranial [Recovered/Resolved with Sequelae]

NARRATIVE: CASE EVENT DATE: 20190111
